FAERS Safety Report 10568061 (Version 1)
Quarter: 2014Q4

REPORT INFORMATION
  Report Type: Spontaneous
  Country: US (occurrence: None)
  Receive Date: 20141105
  Receipt Date: 20141105
  Transmission Date: 20150529
  Serious: Yes (Other)
  Sender: FDA-Public Use
  Company Number: None

PATIENT
  Age: 51 Year
  Sex: Female
  Weight: 76.66 kg

DRUGS (2)
  1. LEVAQUIN [Suspect]
     Active Substance: LEVOFLOXACIN
     Indication: PNEUMONIA
     Dates: start: 20140813, end: 20140820
  2. LEVAQUIN [Suspect]
     Active Substance: LEVOFLOXACIN
     Indication: INFLUENZA
     Dates: start: 20140813, end: 20140820

REACTIONS (3)
  - Pain in extremity [None]
  - Trigger finger [None]
  - Depression [None]

NARRATIVE: CASE EVENT DATE: 20120602
